FAERS Safety Report 6407143-1 (Version None)
Quarter: 2009Q4

REPORT INFORMATION
  Report Type: 
  Country: None (occurrence: None)
  Receive Date: 20091014
  Receipt Date: 20090928
  Transmission Date: 20100525
  Serious: Yes (Life-Threatening, Hospitalization)
  Sender: FDA-Public Use
  Company Number: 1000007306

PATIENT
  Age: 93 Year
  Sex: Female

DRUGS (18)
  1. MEMANTINE HCL [Suspect]
     Indication: DEMENTIA ALZHEIMER'S TYPE
     Dosage: 20 MG (20 MG, 1 IN 1 D), ORAL
     Route: 048
     Dates: start: 20090509, end: 20090702
  2. COGNISUR [Concomitant]
  3. ANXIOVITA [Concomitant]
  4. ATENOLOL [Concomitant]
  5. HYDROCHLOROTHIAZIDE [Concomitant]
  6. REMINYL ER (GALANTAMINE) [Concomitant]
  7. ASPIRIN [Concomitant]
  8. VIT D [Concomitant]
  9. DUOTRAV [Concomitant]
  10. BRIMONIDINE [Concomitant]
  11. QUETIAPINE [Concomitant]
  12. CRESTOR [Concomitant]
  13. GNESTRA (CALCIUM MAGNESIUM) [Concomitant]
  14. M6 NATURE PHARM DIGESTIVE ENZYME [Concomitant]
  15. BIO STRATH YEAST [Concomitant]
  16. HME FORTE [Concomitant]
  17. SUPER NEUROGENA DHA [Concomitant]
  18. RENEEL [Concomitant]

REACTIONS (17)
  - AGGRESSION [None]
  - AGITATION [None]
  - BACTERIAL TEST POSITIVE [None]
  - BLOOD CREATININE INCREASED [None]
  - BLOOD GLUCOSE INCREASED [None]
  - BLOOD UREA INCREASED [None]
  - BRADYARRHYTHMIA [None]
  - DYSLIPIDAEMIA [None]
  - ENTEROCOCCAL INFECTION [None]
  - HYPOKALAEMIA [None]
  - HYPOMAGNESAEMIA [None]
  - HYPOPHAGIA [None]
  - LOSS OF CONSCIOUSNESS [None]
  - SEPSIS [None]
  - URINARY TRACT INFECTION [None]
  - URINARY TRACT INFECTION ENTEROCOCCAL [None]
  - VOMITING [None]
